FAERS Safety Report 12550978 (Version 1)
Quarter: 2016Q3

REPORT INFORMATION
  Report Type: Spontaneous
  Country: US (occurrence: US)
  Receive Date: 20160713
  Receipt Date: 20160713
  Transmission Date: 20161109
  Serious: No
  Sender: FDA-Public Use
  Company Number: US-BRISTOL-MYERS SQUIBB COMPANY-BMS-2016-056262

PATIENT
  Age: 74 Year
  Sex: Female

DRUGS (4)
  1. EMPLICITI [Suspect]
     Active Substance: ELOTUZUMAB
     Indication: PRODUCT USED FOR UNKNOWN INDICATION
     Dosage: UNK UNK, QWK
     Route: 065
     Dates: start: 20160525
  2. EMPLICITI [Suspect]
     Active Substance: ELOTUZUMAB
     Dosage: UNK UNK, QWK
     Route: 065
     Dates: start: 20160615, end: 20160622
  3. EMPLICITI [Suspect]
     Active Substance: ELOTUZUMAB
     Dosage: UNK UNK, QWK
     Route: 065
     Dates: start: 20160608
  4. EMPLICITI [Suspect]
     Active Substance: ELOTUZUMAB
     Dosage: UNK UNK, QWK
     Route: 065
     Dates: start: 20160601

REACTIONS (1)
  - Pain [Unknown]
